FAERS Safety Report 5792539-1 (Version None)
Quarter: 2008Q2

REPORT INFORMATION
  Report Type: 
  Country: None (occurrence: None)
  Receive Date: 20080626
  Receipt Date: 20080617
  Transmission Date: 20081010
  Serious: Yes (Other)
  Sender: FDA-Public Use
  Company Number: US-PFIZER INC-2007028988

PATIENT
  Sex: Female
  Weight: 39.5 kg

DRUGS (4)
  1. NEURONTIN [Suspect]
     Indication: NEUROPATHY PERIPHERAL
  2. LYRICA [Suspect]
     Indication: NEUROPATHY PERIPHERAL
  3. VITAMINS [Concomitant]
  4. IBUROFEN [Concomitant]

REACTIONS (20)
  - ADRENAL DISORDER [None]
  - AGITATION [None]
  - ANGINA PECTORIS [None]
  - DIZZINESS [None]
  - DRUG INEFFECTIVE [None]
  - FEELING ABNORMAL [None]
  - HEADACHE [None]
  - HYPOTHALAMO-PITUITARY DISORDER [None]
  - INSOMNIA [None]
  - INTERVERTEBRAL DISC DISORDER [None]
  - MEDICATION ERROR [None]
  - MUSCULAR WEAKNESS [None]
  - MYALGIA [None]
  - NARCOLEPSY [None]
  - PALPITATIONS [None]
  - PANCREATIC INSUFFICIENCY [None]
  - POLYMYOSITIS [None]
  - SEDATION [None]
  - VISION BLURRED [None]
  - WITHDRAWAL SYNDROME [None]
